FAERS Safety Report 17890570 (Version 1)
Quarter: 2020Q2

REPORT INFORMATION
  Report Type: Report from Study
  Country: RU (occurrence: RU)
  Receive Date: 20200612
  Receipt Date: 20200612
  Transmission Date: 20200714
  Serious: Yes (Other)
  Sender: FDA-Public Use
  Company Number: RU-UCBSA-2020023366

PATIENT

DRUGS (1)
  1. LEVETIRACETAM. [Suspect]
     Active Substance: LEVETIRACETAM
     Indication: EPILEPSY
     Dosage: UNK

REACTIONS (8)
  - Somnolence [Unknown]
  - Anxiety [Unknown]
  - Hallucination [Unknown]
  - Agitation [Unknown]
  - Drug ineffective [Unknown]
  - Seizure [Unknown]
  - Irritability [Unknown]
  - Aggression [Unknown]
